FAERS Safety Report 4988373-2 (Version None)
Quarter: 2006Q2

REPORT INFORMATION
  Report Type: 
  Country: None (occurrence: None)
  Receive Date: 20060502
  Receipt Date: 20060428
  Transmission Date: 20061013
  Serious: No
  Sender: FDA-Public Use
  Company Number: DE-JNJFOC-20060402455

PATIENT
  Sex: Female
  Weight: 55 kg

DRUGS (5)
  1. DURAGESIC-100 [Suspect]
     Route: 062
  2. DURAGESIC-100 [Suspect]
     Indication: PAIN
     Route: 062
  3. MELPERON [Concomitant]
     Route: 048
  4. HYGROTON [Concomitant]
     Route: 048
  5. SEROQUEL [Concomitant]
     Indication: DEPRESSION
     Route: 065

REACTIONS (1)
  - SOMNOLENCE [None]
